FAERS Safety Report 16309596 (Version 1)
Quarter: 2019Q2

REPORT INFORMATION
  Report Type: Spontaneous
  Country: GB (occurrence: GB)
  Receive Date: 20190514
  Receipt Date: 20190514
  Transmission Date: 20190711
  Serious: Yes (Life-Threatening, Hospitalization)
  Sender: FDA-Public Use
  Company Number: GB-TORRENT-00003659

PATIENT
  Age: 69 Year
  Sex: Male
  Weight: 64 kg

DRUGS (3)
  1. AMOXICILLIN. [Concomitant]
     Active Substance: AMOXICILLIN
     Indication: PRODUCT USED FOR UNKNOWN INDICATION
  2. CLARITHROMYCIN. [Concomitant]
     Active Substance: CLARITHROMYCIN
     Indication: PRODUCT USED FOR UNKNOWN INDICATION
     Dosage: PRIOR TO ADMISSION
  3. DONEPEZIL. [Suspect]
     Active Substance: DONEPEZIL
     Indication: DEMENTIA ALZHEIMER^S TYPE
     Dosage: DRUG START?PERIOD: 653 DAYS?DRUG LAST PERIOD:?616 DAYS
     Route: 048
     Dates: start: 20130311, end: 20130417

REACTIONS (3)
  - Gastritis [Unknown]
  - Gastrointestinal haemorrhage [Recovering/Resolving]
  - Oesophagitis [Unknown]

NARRATIVE: CASE EVENT DATE: 20141224
